FAERS Safety Report 4899740-X (Version None)
Quarter: 2006Q1

REPORT INFORMATION
  Report Type: 
  Country: None (occurrence: None)
  Receive Date: 20060131
  Receipt Date: 20060118
  Transmission Date: 20060701
  Serious: Yes (Hospitalization)
  Sender: FDA-Public Use
  Company Number: 221425

PATIENT
  Age: 54 Year
  Sex: Male
  Weight: 90.6 kg

DRUGS (5)
  1. AVASTIN [Suspect]
     Indication: ANAPLASTIC ASTROCYTOMA
     Dosage: 1360 MG, Q3W; INTRAVENOUS
     Route: 042
     Dates: start: 20051130
  2. IRNOTECAN (IRINOTECAN HYDROCHLORIDE) [Suspect]
     Indication: ANAPLASTIC ASTROCYTOMA
     Dosage: 750 MG, 4/MONTH; INTRAVENOUS
     Route: 042
     Dates: start: 20051130
  3. DILANTIN [Concomitant]
  4. KEPPRA [Concomitant]
  5. DECADRON [Concomitant]

REACTIONS (14)
  - ANTICONVULSANT DRUG LEVEL BELOW THERAPEUTIC [None]
  - BLOOD CULTURE POSITIVE [None]
  - CATHETER RELATED INFECTION [None]
  - CATHETER SITE DISCHARGE [None]
  - CHILLS [None]
  - CONFUSIONAL STATE [None]
  - GRAND MAL CONVULSION [None]
  - HYPERCAPNIA [None]
  - INFECTION [None]
  - MENTAL STATUS CHANGES [None]
  - METABOLIC ACIDOSIS [None]
  - PYREXIA [None]
  - SENSORY LOSS [None]
  - STAPHYLOCOCCAL INFECTION [None]
